FAERS Safety Report 21830774 (Version 1)
Quarter: 2023Q1

REPORT INFORMATION
  Report Type: Spontaneous
  Country: US (occurrence: None)
  Receive Date: 20230105
  Receipt Date: 20230105
  Transmission Date: 20230417
  Serious: Yes (Hospitalization, Disabling)
  Sender: FDA-Public Use
  Company Number: None

PATIENT
  Age: 54 Year
  Sex: Male
  Weight: 101.25 kg

DRUGS (1)
  1. REPATHA [Suspect]
     Active Substance: EVOLOCUMAB
     Indication: Blood cholesterol abnormal
     Route: 030
     Dates: start: 20221230, end: 20221231

REACTIONS (5)
  - Angle closure glaucoma [None]
  - Headache [None]
  - Unevaluable event [None]
  - Eye disorder [None]
  - Hypertension [None]

NARRATIVE: CASE EVENT DATE: 20221231
